FAERS Safety Report 25619924 (Version 3)
Quarter: 2025Q3

REPORT INFORMATION
  Report Type: Report from Study
  Country: US (occurrence: US)
  Receive Date: 20250730
  Receipt Date: 20250905
  Transmission Date: 20251021
  Serious: Yes (Hospitalization, Other)
  Sender: ABBVIE
  Company Number: US-ABBVIE-6384607

PATIENT
  Age: 92 Year
  Sex: Male
  Weight: 64.863 kg

DRUGS (2)
  1. HUMIRA [Suspect]
     Active Substance: ADALIMUMAB
     Indication: Colitis ulcerative
     Route: 058
     Dates: start: 20160524
  2. HUMIRA [Suspect]
     Active Substance: ADALIMUMAB
     Dosage: CITRATE FREE
     Route: 058
     Dates: start: 2021, end: 20250624

REACTIONS (6)
  - Post procedural sepsis [Recovered/Resolved]
  - Fall [Recovered/Resolved]
  - Heart rate decreased [Recovering/Resolving]
  - Cardiac pacemaker insertion [Recovering/Resolving]
  - Fall [Recovered/Resolved]
  - Hypotension [Recovered/Resolved]

NARRATIVE: CASE EVENT DATE: 20250101
